FAERS Safety Report 5995193-9 (Version None)
Quarter: 2008Q4

REPORT INFORMATION
  Report Type: 
  Country: None (occurrence: None)
  Receive Date: 20081212
  Receipt Date: 20080915
  Transmission Date: 20090506
  Serious: No
  Sender: FDA-Public Use
  Company Number: US-ABBOTT-08P-163-0478053-00

PATIENT
  Sex: Female
  Weight: 53.572 kg

DRUGS (30)
  1. HUMIRA [Suspect]
     Indication: CROHN'S DISEASE
     Route: 050
     Dates: start: 20071108, end: 20080301
  2. HUMIRA [Suspect]
     Route: 050
     Dates: start: 20080329, end: 20080701
  3. HUMIRA [Suspect]
     Route: 050
     Dates: start: 20080913
  4. DIOVAN HCT [Concomitant]
     Indication: HYPERTENSION
  5. ATORVASTATIN CALCIUM [Concomitant]
     Indication: BLOOD CHOLESTEROL INCREASED
  6. MESALAMINE [Concomitant]
     Indication: CROHN'S DISEASE
     Dosage: FORM: 500 MILLIGRAMS
  7. LANSOPRAZOLE [Concomitant]
     Indication: GASTRITIS
  8. LANSOPRAZOLE [Concomitant]
     Indication: CROHN'S DISEASE
  9. CYCLOBENZAPRINE HCL [Concomitant]
     Indication: ANKYLOSING SPONDYLITIS
  10. CYCLOBENZAPRINE HCL [Concomitant]
     Indication: FIBROMYALGIA
  11. PROPACET 100 [Concomitant]
     Indication: ARTHRALGIA
     Dosage: FORM: 100/650
  12. PROPACET 100 [Concomitant]
     Indication: ANKYLOSING SPONDYLITIS
  13. ACETAMINOPHEN [Concomitant]
     Indication: ARTHRALGIA
     Dosage: FORM: 650 MILLIGRAMS
  14. ACETAMINOPHEN [Concomitant]
     Indication: ANKYLOSING SPONDYLITIS
  15. CITRACAL + D [Concomitant]
     Indication: OSTEOPOROSIS
     Dosage: FORM: 315 MILLIGRAMS
  16. CYCLOSPORINE [Concomitant]
     Indication: PINGUECULA
  17. CYCLOSPORINE [Concomitant]
     Indication: ANKYLOSING SPONDYLITIS
  18. HEPARIN [Concomitant]
     Indication: CYSTITIS INTERSTITIAL
     Dates: start: 20080723
  19. GABAPENTIN [Concomitant]
     Indication: CYSTITIS INTERSTITIAL
     Dates: start: 20080604
  20. HYDROXYZINE [Concomitant]
     Indication: CYSTITIS INTERSTITIAL
  21. PENTOSAN POLYSULFATE SODIUM [Concomitant]
     Indication: CYSTITIS INTERSTITIAL
     Dates: start: 20080112, end: 20080413
  22. URELLE [Concomitant]
     Indication: CYSTITIS INTERSTITIAL
  23. NARINE [Concomitant]
     Indication: HOUSE DUST ALLERGY
  24. FLUTICASONE PROPIONATE [Concomitant]
     Indication: HOUSE DUST ALLERGY
     Dosage: 0.05% - 2 SPRAYS IN EACH NOSTRIL
     Route: 045
  25. MONTELUKAST SODIUM [Concomitant]
     Indication: HOUSE DUST ALLERGY
  26. NEIL MEDI SINUS RINSE (OTC) [Concomitant]
     Indication: HOUSE DUST ALLERGY
  27. TRIAZ PAD (BENZOYL PEROXIDE 3%) [Concomitant]
     Indication: ACNE
     Dosage: 1 PAD APPLY TO FACE
  28. TAZAROTENE [Concomitant]
     Indication: ACNE
     Dosage: APPLY TO TRIAZ PAD, THEN TO FACE
  29. PIMECROLIMUS [Concomitant]
     Indication: ACNE
     Dosage: APPLY TO FACE AS NEEDED FOR REDNESS/DRYNESS
  30. AVAR GEL 10% SODIUM SULFACETIMIDE, 5% SULFUR [Concomitant]
     Indication: ACNE
     Dosage: APPLY TO FACE AS NEEDED FOR ACNE FLARE-UPS

REACTIONS (5)
  - ABDOMINAL PAIN [None]
  - ANOREXIA [None]
  - DRUG INEFFECTIVE [None]
  - HAEMATOCHEZIA [None]
  - RHEUMATOID ARTHRITIS [None]
